FAERS Safety Report 5776335-7 (Version None)
Quarter: 2008Q2

REPORT INFORMATION
  Report Type: 
  Country: None (occurrence: None)
  Receive Date: 20080618
  Receipt Date: 20080327
  Transmission Date: 20081010
  Serious: No
  Sender: FDA-Public Use
  Company Number: US-BAYER-200818338NA

PATIENT
  Age: 23 Year
  Sex: Female
  Weight: 66 kg

DRUGS (4)
  1. YAZ [Suspect]
     Indication: CONTRACEPTION
     Route: 048
     Dates: start: 20080101
  2. BENZONATATE [Concomitant]
     Indication: COUGH
     Dates: start: 20080326
  3. EOXYCYCORINE NOS [Concomitant]
     Dates: start: 20080326
  4. METHYLPREDNISOLONE [Concomitant]
     Dates: start: 20080326

REACTIONS (1)
  - METRORRHAGIA [None]
